FAERS Safety Report 23734333 (Version 1)
Quarter: 2024Q2

REPORT INFORMATION
  Report Type: Spontaneous
  Country: US (occurrence: US)
  Receive Date: 20240412
  Receipt Date: 20240412
  Transmission Date: 20240716
  Serious: Yes (Other)
  Sender: FDA-Public Use
  Company Number: US-SPECGX-T202302451

PATIENT
  Age: 8 Decade
  Sex: Male

DRUGS (16)
  1. FENTANYL TRANSDERMAL SYSTEM [Suspect]
     Active Substance: FENTANYL
     Indication: Product used for unknown indication
     Dosage: 50 MCG/H ONE PATCH, EVERY 72 H
     Route: 062
  2. METHYLPHENIDATE HYDROCHLORIDE [Suspect]
     Active Substance: METHYLPHENIDATE HYDROCHLORIDE
     Indication: Depression
     Dosage: 5 MILLIGRAM, QD
     Route: 048
  3. MIRTAZAPINE [Suspect]
     Active Substance: MIRTAZAPINE
     Indication: Depression
     Dosage: 15 MILLIGRAM, QHS (AT BEDTIME)
     Route: 048
  4. MIRTAZAPINE [Suspect]
     Active Substance: MIRTAZAPINE
     Dosage: 30 MILLIGRAM, QHS (AT BEDTIME)
     Route: 048
  5. DOCUSATE SODIUM [Suspect]
     Active Substance: DOCUSATE SODIUM
     Indication: Product used for unknown indication
     Dosage: 100 MILLIGRAM, QHS (AT BEDTIME)
     Route: 048
  6. VITAMINS NOS [Suspect]
     Active Substance: VITAMINS
     Indication: Product used for unknown indication
     Dosage: 1 DOSAGE FORM, QD
     Route: 048
  7. MILK OF MAGNESIA [Suspect]
     Active Substance: MAGNESIUM HYDROXIDE
     Indication: Constipation
     Dosage: 30 MILLILITER, PRN, DAILY
     Route: 048
  8. HYPROMELLOSE, UNSPECIFIED [Suspect]
     Active Substance: HYPROMELLOSE, UNSPECIFIED
     Indication: Product used for unknown indication
     Dosage: 1 DROP, QID
     Route: 047
  9. SODIUM CHLORIDE [Suspect]
     Active Substance: SODIUM CHLORIDE
     Indication: Product used for unknown indication
     Dosage: THREE TIMES A WEEK
     Route: 054
  10. POLYETHYLENE GLYCOL 3350 [Suspect]
     Active Substance: POLYETHYLENE GLYCOL 3350
     Indication: Product used for unknown indication
     Dosage: ONE PACK, THREE-TIMES A WEEK
     Route: 048
  11. DIPHENHYDRAMINE [Suspect]
     Active Substance: DIPHENHYDRAMINE
     Indication: Product used for unknown indication
     Dosage: 25 MILLIGRAM, QHS (AT BEDTIME)
     Route: 048
  12. LATANOPROST [Suspect]
     Active Substance: LATANOPROST
     Indication: Product used for unknown indication
     Dosage: 1 DROP, QHS (AT BEDTIME)
     Route: 047
  13. FAMOTIDINE [Suspect]
     Active Substance: FAMOTIDINE
     Indication: Product used for unknown indication
     Dosage: 20 MILLIGRAM, BID
     Route: 048
  14. GLIMEPIRIDE [Suspect]
     Active Substance: GLIMEPIRIDE
     Indication: Product used for unknown indication
     Dosage: 4 MILLIGRAM, BID
     Route: 048
  15. BACLOFEN [Suspect]
     Active Substance: BACLOFEN
     Indication: Product used for unknown indication
     Dosage: 20 MILLIGRAM, Q8H
     Route: 048
  16. OXYBUTYNIN [Suspect]
     Active Substance: OXYBUTYNIN\OXYBUTYNIN CHLORIDE
     Indication: Product used for unknown indication
     Dosage: 10 MILLIGRAM, QD
     Route: 048

REACTIONS (12)
  - Dementia of the Alzheimer^s type, with delusions [Unknown]
  - Hallucination, visual [Unknown]
  - Hallucination [Unknown]
  - Unresponsive to stimuli [Recovering/Resolving]
  - Psychomotor retardation [Unknown]
  - Sleep disorder [Recovering/Resolving]
  - Delusion [Recovered/Resolved]
  - Histrionic personality disorder [Unknown]
  - Decreased appetite [Recovering/Resolving]
  - Depression [Recovering/Resolving]
  - Drug effective for unapproved indication [Unknown]
  - Product use issue [Unknown]
